FAERS Safety Report 8809283 (Version 1)
Quarter: 2012Q4

REPORT INFORMATION
  Report Type: Spontaneous
  Country: US (occurrence: None)
  Receive Date: 20120924
  Receipt Date: 20120924
  Transmission Date: 20130627
  Serious: Yes (Other)
  Sender: FDA-Public Use
  Company Number: None

PATIENT
  Age: 3 Year
  Sex: Female
  Weight: 13.15 kg

DRUGS (1)
  1. MONTELUKAST [Suspect]
     Indication: ASTHMA
     Dosage: 1 tab
     Route: 048
     Dates: start: 20120919, end: 20120921

REACTIONS (9)
  - Personality change [None]
  - Depressed mood [None]
  - Psychomotor hyperactivity [None]
  - Mood swings [None]
  - Initial insomnia [None]
  - Middle insomnia [None]
  - Screaming [None]
  - Tremor [None]
  - Hallucination, visual [None]
